FAERS Safety Report 25459209 (Version 2)
Quarter: 2025Q4

REPORT INFORMATION
  Report Type: Spontaneous
  Country: US (occurrence: US)
  Receive Date: 20250620
  Receipt Date: 20251031
  Transmission Date: 20260118
  Serious: Yes (Other)
  Sender: ELI LILLY AND COMPANY
  Company Number: US-ELI_LILLY_AND_COMPANY-US202506011685

PATIENT
  Age: 46 Year
  Sex: Male
  Weight: 129 kg

DRUGS (28)
  1. MOUNJARO [Suspect]
     Active Substance: TIRZEPATIDE
     Indication: Type 2 diabetes mellitus
     Dosage: 2.5 MG, WEEKLY (1/W)
     Route: 065
     Dates: start: 20221226, end: 20230301
  2. MOUNJARO [Suspect]
     Active Substance: TIRZEPATIDE
     Indication: Type 2 diabetes mellitus
     Dosage: 2.5 MG, WEEKLY (1/W)
     Route: 065
     Dates: start: 20221226, end: 20230301
  3. MOUNJARO [Suspect]
     Active Substance: TIRZEPATIDE
     Dosage: 2.5 MG, WEEKLY (1/W)
     Route: 065
     Dates: start: 20231221, end: 20240116
  4. MOUNJARO [Suspect]
     Active Substance: TIRZEPATIDE
     Dosage: 2.5 MG, WEEKLY (1/W)
     Route: 065
     Dates: start: 20231221, end: 20240116
  5. MOUNJARO [Suspect]
     Active Substance: TIRZEPATIDE
     Dosage: 2.5 MG, WEEKLY (1/W)
     Route: 065
     Dates: start: 20240607, end: 20240621
  6. MOUNJARO [Suspect]
     Active Substance: TIRZEPATIDE
     Dosage: 2.5 MG, WEEKLY (1/W)
     Route: 065
     Dates: start: 20240607, end: 20240621
  7. MOUNJARO [Suspect]
     Active Substance: TIRZEPATIDE
     Indication: Type 2 diabetes mellitus
     Dosage: 5 MG, WEEKLY (1/W)
     Route: 065
     Dates: start: 20230301, end: 20240116
  8. MOUNJARO [Suspect]
     Active Substance: TIRZEPATIDE
     Indication: Type 2 diabetes mellitus
     Dosage: 5 MG, WEEKLY (1/W)
     Route: 065
     Dates: start: 20230301, end: 20240116
  9. MOUNJARO [Suspect]
     Active Substance: TIRZEPATIDE
     Dosage: 5 MG, WEEKLY (1/W)
     Route: 065
     Dates: start: 20240116, end: 20240116
  10. MOUNJARO [Suspect]
     Active Substance: TIRZEPATIDE
     Dosage: 5 MG, WEEKLY (1/W)
     Route: 065
     Dates: start: 20240116, end: 20240116
  11. TRULICITY [Suspect]
     Active Substance: DULAGLUTIDE
     Indication: Type 2 diabetes mellitus
     Dosage: 1.5 MG, WEEKLY (1/W)
     Route: 065
     Dates: start: 20221026, end: 20221130
  12. TRULICITY [Suspect]
     Active Substance: DULAGLUTIDE
     Dosage: 3 MG, WEEKLY (1/W)
     Route: 065
     Dates: start: 20221130, end: 20221226
  13. OZEMPIC [Suspect]
     Active Substance: SEMAGLUTIDE
     Indication: Type 2 diabetes mellitus
     Dosage: UNK UNK, UNKNOWN
     Route: 065
     Dates: start: 20240130, end: 20240607
  14. DEXTROSE [Concomitant]
     Active Substance: DEXTROSE MONOHYDRATE
     Indication: Blood glucose
  15. LIPITOR [Concomitant]
     Active Substance: ATORVASTATIN CALCIUM
     Indication: Blood cholesterol
     Dosage: UNK
     Dates: start: 20231026
  16. CYMBALTA [Concomitant]
     Active Substance: DULOXETINE HYDROCHLORIDE
     Indication: Depression
     Dosage: UNK
     Dates: start: 20231107
  17. ANTIVERT [Concomitant]
     Active Substance: MECLIZINE HYDROCHLORIDE
     Indication: Dizziness
     Dosage: UNK
     Dates: start: 20231025, end: 20231104
  18. ALPHA LIPOIC ACID [Concomitant]
     Active Substance: .ALPHA.-LIPOIC ACID
     Indication: Neuropathy peripheral
     Dosage: UNK MG
     Dates: start: 20231109
  19. NORVASC [Concomitant]
     Active Substance: AMLODIPINE BESYLATE
     Indication: Blood pressure measurement
     Dosage: UNK
     Dates: start: 20231221
  20. TRESIBA [Concomitant]
     Active Substance: INSULIN DEGLUDEC
     Indication: Blood glucose
     Dosage: UNK
     Dates: start: 20240411, end: 20240927
  21. FUROSEMIDE [Concomitant]
     Active Substance: FUROSEMIDE
     Indication: Oedema
     Dosage: UNK
     Dates: start: 20240419, end: 20250916
  22. MOBIC [Concomitant]
     Active Substance: MELOXICAM
     Indication: Antiinflammatory therapy
     Dosage: UNK
     Dates: start: 20240419
  23. ACTOS [Concomitant]
     Active Substance: PIOGLITAZONE HYDROCHLORIDE
     Indication: Diabetes mellitus
     Dosage: UNK
     Dates: start: 20240508, end: 20241114
  24. HUMALOG KWIKPEN [Concomitant]
     Active Substance: INSULIN LISPRO
     Indication: Diabetes mellitus
     Dosage: UNK
     Dates: start: 20240522, end: 20240927
  25. LYRICA [Concomitant]
     Active Substance: PREGABALIN
     Indication: Neuropathy peripheral
  26. DOXYCYCLINE HYDROCHLORIDE [Concomitant]
     Active Substance: DOXYCYCLINE HYDROCHLORIDE
     Indication: Fungal infection
     Dosage: 100 MG
     Dates: start: 20240805, end: 20240815
  27. CLINDAMYCIN [Concomitant]
     Active Substance: CLINDAMYCIN
     Indication: Neuropathy peripheral
  28. PRINIVIL [Concomitant]
     Active Substance: LISINOPRIL
     Indication: Hypertension
     Dosage: UNK
     Dates: start: 20240717

REACTIONS (4)
  - Impaired gastric emptying [Not Recovered/Not Resolved]
  - Nausea [Unknown]
  - Vomiting [Not Recovered/Not Resolved]
  - Constipation [Unknown]

NARRATIVE: CASE EVENT DATE: 20221027
